FAERS Safety Report 11103843 (Version 1)
Quarter: 2015Q2

REPORT INFORMATION
  Report Type: Spontaneous
  Country: IT (occurrence: None)
  Receive Date: 20150507
  Receipt Date: 20150507
  Transmission Date: 20150821
  Serious: Yes (Hospitalization)
  Sender: FDA-Public Use
  Company Number: FK201501931

PATIENT
  Age: 37 Year
  Sex: Female

DRUGS (4)
  1. FENTANEST (FENTANYL) (FENTANYL) [Suspect]
     Active Substance: FENTANYL CITRATE
     Indication: INDUCTION OF ANAESTHESIA
     Dosage: 40 MG, 1 IN 1 TOTAL
     Route: 042
     Dates: start: 20150330, end: 20150330
  2. CEFTRIAXONE MYLAN [Suspect]
     Active Substance: CEFTRIAXONE
     Indication: ANTIBIOTIC PROPHYLAXIS
     Dosage: 2 GM, 1 IN 1 TOTAL
     Route: 042
     Dates: start: 20150330, end: 20150330
  3. PROPOFOL 1% MCT FRESENIUS (PROPOFOL) (PROPOFOL) [Suspect]
     Active Substance: PROPOFOL
     Indication: INDUCTION OF ANAESTHESIA
     Dosage: 140 MG, 1 IN 1 TOTAL
     Route: 042
     Dates: start: 20150330, end: 20150330
  4. ESMERON (ROCURONIUM BROMIDE) (ROCURONIUM BROMIDE) [Suspect]
     Active Substance: ROCURONIUM BROMIDE
     Indication: INDUCTION OF ANAESTHESIA
     Dosage: 40 MG, 1 IN 1 TOTAL
     Route: 042
     Dates: start: 20150330, end: 20150330

REACTIONS (4)
  - Hypotension [None]
  - Tachycardia [None]
  - Rash [None]
  - Piloerection [None]

NARRATIVE: CASE EVENT DATE: 20150330
